FAERS Safety Report 13716588 (Version 1)
Quarter: 2017Q3

REPORT INFORMATION
  Report Type: Report from Study
  Country: PA (occurrence: PA)
  Receive Date: 20170705
  Receipt Date: 20170705
  Transmission Date: 20171127
  Serious: Yes (Other)
  Sender: FDA-Public Use
  Company Number: PHHY2017PA097327

PATIENT
  Age: 69 Year
  Sex: Male

DRUGS (1)
  1. EXFORGE [Suspect]
     Active Substance: AMLODIPINE BESYLATE\VALSARTAN
     Indication: PRODUCT USED FOR UNKNOWN INDICATION
     Dosage: (AMLODIPINE 10 MG/ VALSARTAN 320 MG)
     Route: 065

REACTIONS (1)
  - Renal cyst [Unknown]
